FAERS Safety Report 9405088 (Version 1)
Quarter: 2013Q3

REPORT INFORMATION
  Report Type: Report from Study
  Country: US (occurrence: US)
  Receive Date: 20130717
  Receipt Date: 20130717
  Transmission Date: 20140515
  Serious: Yes (Hospitalization)
  Sender: FDA-Public Use
  Company Number: US-US-EMD SERONO, INC.-7223748

PATIENT
  Age: 71 Year
  Sex: Male
  Weight: 75 kg

DRUGS (3)
  1. REBIF [Suspect]
     Indication: MULTIPLE SCLEROSIS
     Route: 058
     Dates: start: 20081216, end: 201304
  2. HUMALOG                            /00030501/ [Concomitant]
     Indication: TYPE 1 DIABETES MELLITUS
  3. HUMALOG                            /00030501/ [Concomitant]

REACTIONS (7)
  - Myocardial infarction [Unknown]
  - Gastrointestinal haemorrhage [Recovering/Resolving]
  - Urinary tract infection [Recovering/Resolving]
  - Mental disorder [Unknown]
  - Convulsion [Unknown]
  - Weight decreased [Unknown]
  - Multiple sclerosis [Unknown]
